FAERS Safety Report 4638262-8 (Version None)
Quarter: 2005Q2

REPORT INFORMATION
  Report Type: 
  Country: None (occurrence: None)
  Receive Date: 20050415
  Receipt Date: 20050324
  Transmission Date: 20051028
  Serious: Yes (Death, Other)
  Sender: FDA-Public Use
  Company Number: USA050394125

PATIENT
  Age: 32 Year
  Sex: Male
  Weight: 109 kg

DRUGS (1)
  1. XIGRIS [Suspect]
     Indication: SEPSIS
     Dosage: 24 UG/KG/HR
     Dates: start: 20050322, end: 20050324

REACTIONS (1)
  - THROMBOCYTOPENIA [None]
